FAERS Safety Report 20894430 (Version 1)
Quarter: 2022Q2

REPORT INFORMATION
  Report Type: Spontaneous
  Country: US (occurrence: None)
  Receive Date: 20220527
  Receipt Date: 20220527
  Transmission Date: 20220721
  Serious: Yes (Other)
  Sender: FDA-Public Use
  Company Number: None

PATIENT
  Age: 31 Year
  Sex: Male
  Weight: 85.5 kg

DRUGS (1)
  1. CAPLYTA [Suspect]
     Active Substance: LUMATEPERONE
     Indication: Schizoaffective disorder
     Dosage: FREQUENCY : DAILY;?
     Route: 048
     Dates: start: 20220525, end: 20220525

REACTIONS (6)
  - Nausea [None]
  - Vomiting [None]
  - Dizziness [None]
  - Chills [None]
  - Paraesthesia [None]
  - Dysphagia [None]

NARRATIVE: CASE EVENT DATE: 20220525
